FAERS Safety Report 21882463 (Version 1)
Quarter: 2023Q1

REPORT INFORMATION
  Report Type: Spontaneous
  Country: US (occurrence: US)
  Receive Date: 20230119
  Receipt Date: 20230119
  Transmission Date: 20230418
  Serious: Yes (Other)
  Sender: FDA-Public Use
  Company Number: US-SA-2023SA015713

PATIENT
  Age: 66 Year
  Sex: Female

DRUGS (2)
  1. DUPILUMAB [Suspect]
     Active Substance: DUPILUMAB
     Indication: Dermatitis atopic
     Dosage: UNK, SINCE 1.2 MONTHS
  2. ADALIMUMAB [Suspect]
     Active Substance: ADALIMUMAB
     Indication: Dermatitis atopic
     Dosage: UNK

REACTIONS (1)
  - Cutaneous T-cell lymphoma [Not Recovered/Not Resolved]
